FAERS Safety Report 8261493-5 (Version None)
Quarter: 2012Q2

REPORT INFORMATION
  Report Type: 
  Country: None (occurrence: None)
  Receive Date: 20120405
  Receipt Date: 20120330
  Transmission Date: 20120825
  Serious: No
  Sender: FDA-Public Use
  Company Number: JP-PFIZER INC-2012067619

PATIENT
  Sex: Male

DRUGS (1)
  1. TOLTERODINE TARTRATE [Suspect]
     Route: 048

REACTIONS (1)
  - NO ADVERSE EVENT [None]
